FAERS Safety Report 16027935 (Version 3)
Quarter: 2019Q4

REPORT INFORMATION
  Report Type: Spontaneous
  Country: US (occurrence: US)
  Receive Date: 20190304
  Receipt Date: 20191028
  Transmission Date: 20200122
  Serious: Yes (Hospitalization, Other)
  Sender: FDA-Public Use
  Company Number: US-IMPAX LABORATORIES, LLC-2018-IPXL-01081

PATIENT
  Age: 73 Year
  Sex: Female
  Weight: 73 kg

DRUGS (14)
  1. RYTARY [Suspect]
     Active Substance: CARBIDOPA\LEVODOPA
     Dosage: 23.75MG-95 MG, 2 DOSAGE FORM, 5 /DAY
     Route: 048
  2. CITALOPRAM [Concomitant]
     Active Substance: CITALOPRAM HYDROBROMIDE
     Indication: DEPRESSION
  3. LINZESS [Concomitant]
     Active Substance: LINACLOTIDE
     Indication: PRODUCT USED FOR UNKNOWN INDICATION
     Dosage: UNK
     Route: 065
  4. RYTARY [Suspect]
     Active Substance: CARBIDOPA\LEVODOPA
     Dosage: 61.25/245 MG, 2 CAPSULES 5 TIMES DAILY
     Route: 048
     Dates: start: 20180330, end: 201804
  5. CALCIUM [Concomitant]
     Active Substance: CALCIUM
     Indication: SUPPLEMENTATION THERAPY
     Dosage: UNK
     Route: 048
  6. RYTARY [Suspect]
     Active Substance: CARBIDOPA\LEVODOPA
     Dosage: 61.25/245 MG, 2 CAP 5 TIMES DAILY WITH 23.75/95 MG, 1CAP 2 TIMES A DAY AT 10 AM AND 6 PM
     Route: 048
     Dates: start: 20180406
  7. RYTARY [Suspect]
     Active Substance: CARBIDOPA\LEVODOPA
     Indication: PARKINSON^S DISEASE
     Dosage: 23.75/95 MG 5 CAPSULES 5 TIMES A DAY
     Route: 048
     Dates: start: 201801, end: 2018
  8. RYTARY [Suspect]
     Active Substance: CARBIDOPA\LEVODOPA
     Dosage: 23.75/95 MG 5 CAPSULES 5 TIMES A DAY
     Route: 048
     Dates: start: 20180404, end: 20180404
  9. RYTARY [Suspect]
     Active Substance: CARBIDOPA\LEVODOPA
     Dosage: 61.25/245 MG, 2 CAPSULES 5 TIMES DAILY ALTERNATED WITH RYTARY 23.75/95 MG
     Route: 048
     Dates: start: 20180405, end: 201804
  10. RYTARY [Suspect]
     Active Substance: CARBIDOPA\LEVODOPA
     Dosage: 61.25/245 MG, 1 CAPSULES 6 TIMES DAILY (AT 6AM, 9AM, 12 NOON, 3PM, 6PM, AND 9PM)
     Route: 048
  11. SYNTHROID [Concomitant]
     Active Substance: LEVOTHYROXINE SODIUM
     Indication: THYROID HORMONES DECREASED
     Dosage: 0.5 MG, ONCE DAILY
     Route: 048
  12. MAGNESIUM [Concomitant]
     Active Substance: MAGNESIUM
     Indication: SUPPLEMENTATION THERAPY
     Dosage: UNK
     Route: 048
  13. RYTARY [Suspect]
     Active Substance: CARBIDOPA\LEVODOPA
     Dosage: 23.75MG-95 MG, 2 DOSAGE FORM, 6 /DAY
     Route: 048
  14. CITALOPRAM [Concomitant]
     Active Substance: CITALOPRAM HYDROBROMIDE
     Indication: ANXIETY
     Dosage: 20 MG, UNK
     Route: 048

REACTIONS (14)
  - Dyskinesia [Not Recovered/Not Resolved]
  - Product quality issue [Unknown]
  - Therapeutic response shortened [Unknown]
  - Blood pressure increased [Recovered/Resolved]
  - Malaise [Unknown]
  - Gambling disorder [Not Recovered/Not Resolved]
  - Perineal disorder [Recovering/Resolving]
  - Regurgitation [Not Recovered/Not Resolved]
  - Treatment noncompliance [Unknown]
  - Prescribed overdose [Unknown]
  - Drug ineffective [Not Recovered/Not Resolved]
  - Dizziness [Recovered/Resolved]
  - Tremor [Unknown]
  - Nausea [Recovered/Resolved]

NARRATIVE: CASE EVENT DATE: 2018
